FAERS Safety Report 4965976-2 (Version None)
Quarter: 2006Q2

REPORT INFORMATION
  Report Type: 
  Country: None (occurrence: None)
  Receive Date: 20060403
  Receipt Date: 20060321
  Transmission Date: 20061013
  Serious: Yes (Other)
  Sender: FDA-Public Use
  Company Number: 2006040834

PATIENT
  Sex: 0

DRUGS (1)
  1. LIPITOR [Suspect]
     Indication: ILL-DEFINED DISORDER
     Dosage: 40 MG, ORAL
     Route: 048

REACTIONS (2)
  - JOINT SWELLING [None]
  - TENDONITIS [None]
